FAERS Safety Report 7758361-1 (Version None)
Quarter: 2011Q3

REPORT INFORMATION
  Report Type: 
  Country: None (occurrence: None)
  Receive Date: 20110919
  Receipt Date: 20110913
  Transmission Date: 20111222
  Serious: Yes (Hospitalization)
  Sender: FDA-Public Use
  Company Number: GB-SHIRE-ALL1-2011-02229

PATIENT
  Sex: Male

DRUGS (1)
  1. REPLAGAL [Suspect]
     Indication: FABRY'S DISEASE
     Dosage: UNK (ALTERNATING 14 MG AND 10.5 MG), 1X/2WKS
     Route: 041
     Dates: start: 20091101

REACTIONS (3)
  - BLOOD POTASSIUM INCREASED [None]
  - URINARY TRACT INFECTION BACTERIAL [None]
  - RENAL FAILURE [None]
